FAERS Safety Report 9733002 (Version 1)
Quarter: 2013Q4

REPORT INFORMATION
  Report Type: Spontaneous
  Country: FR (occurrence: FR)
  Receive Date: 20131205
  Receipt Date: 20131205
  Transmission Date: 20140711
  Serious: Yes (Hospitalization, Other)
  Sender: FDA-Public Use
  Company Number: FR-PFIZER INC-2013344220

PATIENT
  Age: 87 Year
  Sex: Female

DRUGS (3)
  1. LYRICA [Suspect]
     Indication: PAIN
     Dosage: 75 MG, 2X/DAY
     Route: 048
     Dates: start: 20131025, end: 20131104
  2. ROCEPHINE [Concomitant]
     Indication: PYELONEPHRITIS
     Dosage: UNK
  3. ROCEPHINE [Concomitant]
     Indication: SEPSIS

REACTIONS (3)
  - Asterixis [Recovered/Resolved]
  - Encephalopathy [Unknown]
  - Dizziness [Unknown]
